FAERS Safety Report 25796079 (Version 1)
Quarter: 2025Q3

REPORT INFORMATION
  Report Type: Spontaneous
  Country: EU (occurrence: EU)
  Receive Date: 20250912
  Receipt Date: 20250912
  Transmission Date: 20251021
  Serious: Yes (Death, Hospitalization)
  Sender: TAIHO ONCOLOGY INC
  Company Number: EU-MMM-Otsuka-DPWSTF39

PATIENT
  Age: 86 Year
  Sex: Female
  Weight: 65 kg

DRUGS (6)
  1. INQOVI [Suspect]
     Active Substance: CEDAZURIDINE\DECITABINE
     Indication: Acute myeloid leukaemia
     Dosage: UNK (APPROVED DOSE REGIMEN 5 TABLETS) Q29
     Route: 048
     Dates: start: 20241029, end: 202505
  2. ELIQUIS [Concomitant]
     Active Substance: APIXABAN
     Indication: Product used for unknown indication
     Dosage: 2.5 MG, BID (1-0-1); INTERRUPTED IN FRAME OF LEUCEMIA TREATMENT
     Route: 065
  3. LOSARTAN [Concomitant]
     Active Substance: LOSARTAN
     Indication: Product used for unknown indication
     Dosage: 100 MG, BID (1-0-1)
     Route: 065
  4. OPIPRAMOL [Concomitant]
     Active Substance: OPIPRAMOL
     Indication: Product used for unknown indication
     Dosage: 50 MG, QD (0-0-1)
     Route: 065
  5. LERCANIDIPINE [Concomitant]
     Active Substance: LERCANIDIPINE
     Indication: Product used for unknown indication
     Dosage: 20 MG, QD (1-0-0)
     Route: 065
  6. METOPROLOL [Concomitant]
     Active Substance: METOPROLOL
     Indication: Product used for unknown indication
     Dosage: 47.5 MG, BID (1-0-1)
     Route: 065

REACTIONS (2)
  - Febrile neutropenia [Fatal]
  - Febrile infection [Unknown]
